FAERS Safety Report 14344219 (Version 6)
Quarter: 2018Q2

REPORT INFORMATION
  Report Type: Spontaneous
  Country: US (occurrence: US)
  Receive Date: 20180102
  Receipt Date: 20180516
  Transmission Date: 20180711
  Serious: No
  Sender: FDA-Public Use
  Company Number: US-VIFOR (INTERNATIONAL) INC.-VIT-2017-13176

PATIENT
  Age: 76 Year
  Sex: Female

DRUGS (22)
  1. FERROUS SULFATE. [Concomitant]
     Active Substance: FERROUS SULFATE
  2. GABAPENTIN. [Concomitant]
     Active Substance: GABAPENTIN
  3. VELTASSA [Suspect]
     Active Substance: PATIROMER
     Route: 048
     Dates: start: 20171117
  4. VELTASSA [Suspect]
     Active Substance: PATIROMER
     Route: 048
     Dates: start: 20171205
  5. COLACE [Concomitant]
     Active Substance: DOCUSATE SODIUM
  6. DEEP SEA [Concomitant]
  7. MIRALAX [Concomitant]
     Active Substance: POLYETHYLENE GLYCOL 3350
  8. BASAGLAR [Concomitant]
     Active Substance: INSULIN GLARGINE
  9. METOPROLOL SUCCINATE. [Concomitant]
     Active Substance: METOPROLOL SUCCINATE
  10. NOVOLOG [Concomitant]
     Active Substance: INSULIN ASPART
  11. SODIUM CHLORIDE. [Concomitant]
     Active Substance: SODIUM CHLORIDE
  12. ERGOCALCIFEROL. [Concomitant]
     Active Substance: ERGOCALCIFEROL
  13. BETAMETHASONE~~CLOTRIMAZOLE [Concomitant]
  14. VELTASSA [Suspect]
     Active Substance: PATIROMER
     Indication: HYPERKALAEMIA
     Route: 048
     Dates: start: 201711
  15. FUROSEMIDE. [Concomitant]
     Active Substance: FUROSEMIDE
  16. COLECALCIFEROL [Concomitant]
     Active Substance: CHOLECALCIFEROL
  17. LACTOBACILLUS ACIDOPHILUS [Concomitant]
     Active Substance: LACTOBACILLUS ACIDOPHILUS
  18. AMBIEN [Concomitant]
     Active Substance: ZOLPIDEM TARTRATE
  19. NITROSTAT [Concomitant]
     Active Substance: NITROGLYCERIN
  20. ESTRACE [Concomitant]
     Active Substance: ESTRADIOL
  21. METHOCARBAMOL. [Concomitant]
     Active Substance: METHOCARBAMOL
  22. PROTONIX [Concomitant]
     Active Substance: PANTOPRAZOLE SODIUM

REACTIONS (5)
  - Product physical issue [Unknown]
  - Off label use [Unknown]
  - Constipation [Unknown]
  - Diarrhoea [Not Recovered/Not Resolved]
  - Infrequent bowel movements [Unknown]

NARRATIVE: CASE EVENT DATE: 201711
